FAERS Safety Report 16793854 (Version 3)
Quarter: 2019Q4

REPORT INFORMATION
  Report Type: Spontaneous
  Country: JP (occurrence: JP)
  Receive Date: 20190911
  Receipt Date: 20191227
  Transmission Date: 20200122
  Serious: Yes (Death, Hospitalization, Other)
  Sender: FDA-Public Use
  Company Number: JP-BRISTOL-MYERS SQUIBB COMPANY-BMS-2019-055111

PATIENT
  Age: 63 Year
  Sex: Male
  Weight: 73 kg

DRUGS (2)
  1. OPDIVO [Suspect]
     Active Substance: NIVOLUMAB
     Indication: METASTATIC RENAL CELL CARCINOMA
     Dosage: 240 MG
     Route: 041
     Dates: start: 20181003, end: 20181205
  2. YERVOY [Suspect]
     Active Substance: IPILIMUMAB
     Indication: METASTATIC RENAL CELL CARCINOMA
     Dosage: 68 MG
     Route: 041
     Dates: start: 20181003, end: 20181205

REACTIONS (5)
  - Hypopituitarism [Recovering/Resolving]
  - Hypothyroidism [Recovered/Resolved]
  - Malignant neoplasm progression [Fatal]
  - Small intestine carcinoma [Unknown]
  - Ileus [Unknown]

NARRATIVE: CASE EVENT DATE: 20181205
